FAERS Safety Report 21472100 (Version 1)
Quarter: 2022Q4

REPORT INFORMATION
  Report Type: Spontaneous
  Country: IN (occurrence: IN)
  Receive Date: 20221018
  Receipt Date: 20221018
  Transmission Date: 20230113
  Serious: Yes (Other)
  Sender: FDA-Public Use
  Company Number: IN-PFIZER INC-PV202200079362

PATIENT
  Age: 61 Year
  Sex: Female

DRUGS (3)
  1. PALBOCICLIB [Suspect]
     Active Substance: PALBOCICLIB
     Dosage: 125 MG, 2X/DAY
     Route: 048
     Dates: start: 20211130
  2. PALBOCICLIB [Suspect]
     Active Substance: PALBOCICLIB
     Dosage: UNK
     Dates: start: 202112
  3. LETROZOLE [Concomitant]
     Active Substance: LETROZOLE

REACTIONS (6)
  - Diabetes mellitus [Unknown]
  - Weight increased [Unknown]
  - Oedema peripheral [Unknown]
  - Fatigue [Unknown]
  - Otitis externa [Unknown]
  - Hypertension [Unknown]

NARRATIVE: CASE EVENT DATE: 20221004
